FAERS Safety Report 9897858 (Version 3)
Quarter: 2014Q2

REPORT INFORMATION
  Report Type: Spontaneous
  Country: US (occurrence: US)
  Receive Date: 20140214
  Receipt Date: 20140403
  Transmission Date: 20141212
  Serious: No
  Sender: FDA-Public Use
  Company Number: US-PFIZER INC-2014039339

PATIENT
  Age: 58 Year
  Sex: Female

DRUGS (1)
  1. PREMARIN [Suspect]
     Indication: MENOPAUSAL DISORDER
     Dosage: 1.25 MG, 1X/DAY
     Route: 048
     Dates: start: 2008

REACTIONS (5)
  - Suspected counterfeit product [Unknown]
  - Drug ineffective [Unknown]
  - Mood swings [Unknown]
  - Insomnia [Unknown]
  - Swelling [Unknown]
